FAERS Safety Report 23824304 (Version 1)
Quarter: 2024Q2

REPORT INFORMATION
  Report Type: Spontaneous
  Country: FR (occurrence: None)
  Receive Date: 20240507
  Receipt Date: 20240507
  Transmission Date: 20240716
  Serious: Yes (Life-Threatening, Hospitalization)
  Sender: FDA-Public Use
  Company Number: 2024A105471

PATIENT
  Age: 34 Year
  Sex: Female
  Weight: 64 kg

DRUGS (2)
  1. FASENRA [Suspect]
     Active Substance: BENRALIZUMAB
     Indication: Eosinophilic granulomatosis with polyangiitis
     Dosage: 1 DOSE OF 30 MG30.0MG UNKNOWN
     Route: 030
     Dates: start: 20240419, end: 20240419
  2. BENDAMUSTINE/BORTEZOMIB/RITUXIMAB/DEXAMETHASONE [Concomitant]
     Indication: Eosinophilic granulomatosis with polyangiitis
     Dates: start: 20240418, end: 20240418

REACTIONS (1)
  - Anaphylactic reaction [Recovered/Resolved]

NARRATIVE: CASE EVENT DATE: 20240419
